FAERS Safety Report 5828617-8 (Version None)
Quarter: 2008Q3

REPORT INFORMATION
  Report Type: 
  Country: None (occurrence: None)
  Receive Date: 20080731
  Receipt Date: 20080728
  Transmission Date: 20090109
  Serious: Yes (Hospitalization)
  Sender: FDA-Public Use
  Company Number: A0739787A

PATIENT
  Age: 47 Year
  Sex: Female

DRUGS (6)
  1. IMITREX [Suspect]
     Indication: MIGRAINE
     Dosage: 6MG AS REQUIRED
     Route: 058
     Dates: start: 19990101, end: 20050101
  2. IMITREX [Suspect]
     Route: 048
     Dates: start: 20050101
  3. FLEXERIL [Concomitant]
  4. VICODIN [Concomitant]
  5. DARVOCET [Concomitant]
  6. NEXIUM [Concomitant]

REACTIONS (8)
  - ARTHRALGIA [None]
  - BACK PAIN [None]
  - HYPERHIDROSIS [None]
  - LIPOMA [None]
  - PAIN [None]
  - PALPITATIONS [None]
  - SPINAL CORD COMPRESSION [None]
  - UTERINE NEOPLASM [None]
